FAERS Safety Report 4421249-8 (Version None)
Quarter: 2004Q3

REPORT INFORMATION
  Report Type: 
  Country: None (occurrence: None)
  Receive Date: 20040804
  Receipt Date: 20040722
  Transmission Date: 20050211
  Serious: Yes (Other)
  Sender: FDA-Public Use
  Company Number: 2004IC000396

PATIENT
  Age: 68 Year
  Sex: Male

DRUGS (6)
  1. FLUOROURACIL [Suspect]
     Indication: BILE DUCT CANCER
     Dosage: 400 MG; INTRA-ARTERIAL
     Route: 013
  2. FLUOROURACIL [Suspect]
     Indication: METASTASES TO LIVER
     Dosage: 400 MG; INTRA-ARTERIAL
     Route: 013
  3. MITOMYCIN [Suspect]
     Indication: BILE DUCT CANCER
     Dosage: 16 MG; INTRA-ARTERIAL
     Route: 013
  4. MITOMYCIN [Suspect]
     Indication: METASTASES TO LIVER
     Dosage: 16 MG; INTRA-ARTERIAL
     Route: 013
  5. EPIRUICIN (EPIRUICIN) [Suspect]
     Indication: BILE DUCT CANCER
     Dosage: 48 MG; INTRA-ARTERIAL
     Route: 013
  6. EPIRUICIN (EPIRUICIN) [Suspect]
     Indication: METASTASES TO LIVER
     Dosage: 48 MG; INTRA-ARTERIAL
     Route: 013

REACTIONS (1)
  - ACUTE MYELOID LEUKAEMIA [None]
